FAERS Safety Report 7808516-2 (Version None)
Quarter: 2011Q4

REPORT INFORMATION
  Report Type: 
  Country: None (occurrence: None)
  Receive Date: 20111012
  Receipt Date: 20111002
  Transmission Date: 20120403
  Serious: Yes (Hospitalization)
  Sender: FDA-Public Use
  Company Number: CN-JNJFOC-20111001863

PATIENT
  Age: 2 Month
  Sex: Male
  Weight: 4.5 kg

DRUGS (2)
  1. CONCENTRATED MOTRIN INFANTS DROPS [Suspect]
     Indication: PYREXIA
     Route: 048
     Dates: start: 20111001, end: 20111002
  2. CONCENTRATED MOTRIN INFANTS DROPS [Suspect]
     Route: 048

REACTIONS (4)
  - ACCIDENTAL OVERDOSE [None]
  - SOMNOLENCE [None]
  - FAECES DISCOLOURED [None]
  - HYPERHIDROSIS [None]
